FAERS Safety Report 23118859 (Version 1)
Quarter: 2023Q4

REPORT INFORMATION
  Report Type: Spontaneous
  Country: JP (occurrence: JP)
  Receive Date: 20231028
  Receipt Date: 20231028
  Transmission Date: 20240109
  Serious: Yes (Hospitalization)
  Sender: FDA-Public Use
  Company Number: JP-STRIDES ARCOLAB LIMITED-2023SP016096

PATIENT
  Age: 77 Year
  Sex: Female

DRUGS (2)
  1. DONEPEZIL [Suspect]
     Active Substance: DONEPEZIL
     Indication: Dementia Alzheimer^s type
     Dosage: THE PATIENT TOOK 15 TABLETS OF DONEPEZIL (150MG)
     Route: 065
  2. CILOSTAZOL [Concomitant]
     Active Substance: CILOSTAZOL
     Indication: Dementia Alzheimer^s type
     Dosage: UNK
     Route: 065

REACTIONS (6)
  - Respiratory rate increased [Unknown]
  - Mydriasis [Unknown]
  - Accidental overdose [Unknown]
  - Hypertension [Recovered/Resolved]
  - Miosis [Recovered/Resolved]
  - Postural tremor [Recovered/Resolved]
